FAERS Safety Report 9835205 (Version 2)
Quarter: 2014Q1

REPORT INFORMATION
  Report Type: Report from Study
  Country: US (occurrence: US)
  Receive Date: 20140122
  Receipt Date: 20140122
  Transmission Date: 20141002
  Serious: Yes (Hospitalization, Other)
  Sender: FDA-Public Use
  Company Number: US-ASTRAZENECA-2014SE00367

PATIENT
  Age: 59 Year
  Sex: Female
  Weight: 61.2 kg

DRUGS (28)
  1. NEXIUM [Suspect]
     Indication: GASTROOESOPHAGEAL REFLUX DISEASE
     Route: 048
     Dates: start: 2009, end: 201312
  2. PRILOSEC [Suspect]
     Indication: GASTROOESOPHAGEAL REFLUX DISEASE
     Route: 048
  3. LIPITOR [Suspect]
     Indication: HYPERCHOLESTEROLAEMIA
     Route: 048
     Dates: start: 1995
  4. OXYCODONE [Suspect]
  5. AMLODIPINE [Suspect]
     Indication: BLOOD PRESSURE ABNORMAL
  6. NITROGLYCERIN [Suspect]
     Dosage: 0.4MG SL IF SHE HAS PAIN EVERY 5 MINUTES AS NEEDED
     Route: 060
  7. LOTENSIN [Concomitant]
     Indication: BLOOD PRESSURE ABNORMAL
     Route: 048
     Dates: start: 1995
  8. NORVASC [Concomitant]
     Indication: BLOOD PRESSURE ABNORMAL
     Route: 048
     Dates: start: 2010
  9. BENTYL [Concomitant]
     Indication: IRRITABLE BOWEL SYNDROME
     Route: 048
     Dates: start: 2010
  10. BENTYL [Concomitant]
     Indication: DIVERTICULITIS
     Route: 048
     Dates: start: 2010
  11. PREMARIN [Concomitant]
     Indication: OESTROGEN REPLACEMENT THERAPY
     Route: 048
     Dates: start: 1993
  12. TRICOR [Concomitant]
     Indication: BLOOD CHOLESTEROL ABNORMAL
     Route: 048
     Dates: start: 1995
  13. FLUOXETIN [Concomitant]
     Indication: DEPRESSION
     Route: 048
     Dates: start: 2011
  14. NEURONTIN [Concomitant]
     Indication: PAIN
     Route: 048
     Dates: start: 2009
  15. HYDROMORPHONE [Concomitant]
     Indication: BACK PAIN
     Dosage: 8 MG Q4-6H
     Route: 048
     Dates: start: 2011
  16. HYDROMORPHONE [Concomitant]
     Indication: PAIN IN EXTREMITY
     Dosage: 8 MG Q4-6H
     Route: 048
     Dates: start: 2011
  17. IMDUR NITROGLYCERIN [Concomitant]
     Indication: CARDIAC DISORDER
     Route: 048
     Dates: start: 1995
  18. ATIVAN [Concomitant]
     Indication: SLEEP DISORDER
     Route: 048
     Dates: start: 2012
  19. PHENERGAN [Concomitant]
     Indication: NAUSEA
     Route: 048
  20. RESTORIL [Concomitant]
     Indication: SLEEP DISORDER
     Dosage: 15 MG AT NIGHT PRN
     Route: 048
     Dates: start: 2012
  21. MULTIVITAMINS [Concomitant]
     Indication: SUPPLEMENTATION THERAPY
     Route: 048
  22. ZYRTEC [Concomitant]
     Indication: MULTIPLE ALLERGIES
     Route: 048
  23. VITAMIN E [Concomitant]
     Indication: SUPPLEMENTATION THERAPY
     Route: 048
  24. FIBER [Concomitant]
     Indication: SUPPLEMENTATION THERAPY
     Route: 048
  25. VITAMIN C [Concomitant]
     Indication: SUPPLEMENTATION THERAPY
     Route: 048
  26. NYSTATIN [Concomitant]
     Indication: PROPHYLAXIS
     Dosage: SWISH AND SWALLOW 1 TSP PRN, 100,000 UNIT QID
     Route: 048
  27. MYLANTA [Concomitant]
  28. MAALOX [Concomitant]

REACTIONS (35)
  - Drug withdrawal syndrome [Unknown]
  - Coronary artery occlusion [Unknown]
  - Exostosis [Unknown]
  - Nerve injury [Unknown]
  - Oesophageal perforation [Unknown]
  - Hallucination, visual [Unknown]
  - Nausea [Unknown]
  - Malaise [Unknown]
  - Dyspepsia [Unknown]
  - Fluid retention [Unknown]
  - Asthma [Recovering/Resolving]
  - Back pain [Unknown]
  - Diverticulitis [Unknown]
  - Irritable bowel syndrome [Unknown]
  - Osteoarthritis [Unknown]
  - Pain in extremity [Unknown]
  - Pneumonia [Unknown]
  - Gastrointestinal pain [Unknown]
  - Dyspepsia [Unknown]
  - Adverse drug reaction [Unknown]
  - Vocal cord disorder [Unknown]
  - Hernia [Unknown]
  - Oesophagitis [Unknown]
  - Overweight [Unknown]
  - Weight increased [Unknown]
  - Hyperphagia [Unknown]
  - Hypometabolism [Unknown]
  - Bone disorder [Unknown]
  - Intervertebral disc protrusion [Unknown]
  - Intervertebral disc protrusion [Unknown]
  - Swelling [Unknown]
  - Headache [Unknown]
  - Intentional drug misuse [Unknown]
  - Drug ineffective [Unknown]
  - Off label use [Unknown]
